FAERS Safety Report 5632459-6 (Version None)
Quarter: 2008Q1

REPORT INFORMATION
  Report Type: 
  Country: None (occurrence: None)
  Receive Date: 20080220
  Receipt Date: 20080212
  Transmission Date: 20080703
  Serious: Yes (Hospitalization)
  Sender: FDA-Public Use
  Company Number: GB-BOEHRINGER INGELHEIM GMBH, GERMANY-2008-BP-02431YA

PATIENT
  Age: 70 Year
  Sex: Male

DRUGS (3)
  1. TAMSULOSIN HCL [Suspect]
     Route: 048
     Dates: start: 20070401
  2. CO-CODAMOL [Concomitant]
  3. CODIPAR [Concomitant]

REACTIONS (1)
  - RETINAL TEAR [None]
